FAERS Safety Report 6871020-2 (Version None)
Quarter: 2010Q3

REPORT INFORMATION
  Report Type: 
  Country: None (occurrence: None)
  Receive Date: 20100723
  Receipt Date: 20100715
  Transmission Date: 20110219
  Serious: Yes (Hospitalization)
  Sender: FDA-Public Use
  Company Number: FR-ASTRAZENECA-2010SE33201

PATIENT
  Age: 23930 Day
  Sex: Male

DRUGS (19)
  1. NEXIUM [Suspect]
     Route: 048
     Dates: end: 20100317
  2. REVLIMID [Suspect]
     Route: 048
     Dates: start: 20100218, end: 20100301
  3. IKOREL [Suspect]
     Route: 048
     Dates: end: 20100215
  4. SPASFON [Suspect]
     Route: 048
     Dates: start: 20100206, end: 20100210
  5. AUGMENTIN '125' [Suspect]
     Route: 048
     Dates: start: 20100206, end: 20100219
  6. AUGMENTIN '125' [Suspect]
     Route: 048
     Dates: start: 20100302, end: 20100311
  7. KARDEGIC [Suspect]
     Route: 048
     Dates: end: 20100310
  8. SYMBICORT [Concomitant]
  9. ATACAND [Concomitant]
  10. HYPERIUM [Concomitant]
  11. BRONCHODUAL [Concomitant]
  12. CORDARONE [Concomitant]
  13. PREVISCAN [Concomitant]
  14. TADENAN [Concomitant]
  15. EZETROL [Concomitant]
  16. ZYLORIC [Concomitant]
  17. CARDENSIEL [Concomitant]
  18. PRIMPERAN TAB [Concomitant]
  19. LASILIX 40 [Concomitant]

REACTIONS (1)
  - DRUG RASH WITH EOSINOPHILIA AND SYSTEMIC SYMPTOMS [None]
